FAERS Safety Report 12570351 (Version 1)
Quarter: 2016Q3

REPORT INFORMATION
  Report Type: Spontaneous
  Country: US (occurrence: None)
  Receive Date: 20160718
  Receipt Date: 20160718
  Transmission Date: 20161109
  Serious: Yes (Other)
  Sender: FDA-Public Use
  Company Number: None

PATIENT
  Age: 59 Year
  Sex: Female
  Weight: 64.86 kg

DRUGS (2)
  1. DEXILANT [Concomitant]
     Active Substance: DEXLANSOPRAZOLE
  2. DOXYCYCLINE HYCLATE. [Suspect]
     Active Substance: DOXYCYCLINE HYCLATE
     Indication: BRONCHITIS
     Route: 048
     Dates: start: 20160621, end: 20160701

REACTIONS (9)
  - Photosensitivity reaction [None]
  - Hypersomnia [None]
  - Sunburn [None]
  - Pruritus [None]
  - Skin haemorrhage [None]
  - Drug ineffective [None]
  - Blister [None]
  - Lip haemorrhage [None]
  - Fatigue [None]

NARRATIVE: CASE EVENT DATE: 20160625
